FAERS Safety Report 5105784-5 (Version None)
Quarter: 2006Q3

REPORT INFORMATION
  Report Type: 
  Country: None (occurrence: None)
  Receive Date: 20060915
  Receipt Date: 20060830
  Transmission Date: 20061208
  Serious: Yes (Life-Threatening)
  Sender: FDA-Public Use
  Company Number: JP-ROCHE-461830

PATIENT
  Age: 93 Year
  Sex: Male

DRUGS (1)
  1. ROCEPHIN [Suspect]
     Indication: BACTERIAL INFECTION
     Dosage: ROUTE REPORTED AS: INTRAVENOUS (NOT OTHERWISE SPECIFIED).
     Route: 042
     Dates: start: 20060805, end: 20060813

REACTIONS (1)
  - THROMBOTIC THROMBOCYTOPENIC PURPURA [None]
